FAERS Safety Report 14072142 (Version 1)
Quarter: 2017Q4

REPORT INFORMATION
  Report Type: Spontaneous
  Country: US (occurrence: None)
  Receive Date: 20171010
  Receipt Date: 20171010
  Transmission Date: 20180321
  Serious: Yes (Hospitalization)
  Sender: FDA-Public Use
  Company Number: None

PATIENT
  Age: 79 Year
  Sex: Female
  Weight: 62.3 kg

DRUGS (1)
  1. NIVOLUMAB [Suspect]
     Active Substance: NIVOLUMAB
     Indication: HEPATIC CANCER
     Dosage: DATES OF USE - 5/19, 6/16, 7/14, 7/28, 8/11, 8/28, 10/6/2017?NDC# 9993-3772-11 AND -12?STRENGTH: 10MG/ML BOTH 40 MG AND 100 MG VIALS
     Route: 042
     Dates: end: 20171006

REACTIONS (2)
  - Back pain [None]
  - Infusion related reaction [None]

NARRATIVE: CASE EVENT DATE: 20171006
